FAERS Safety Report 7816231-4 (Version None)
Quarter: 2011Q4

REPORT INFORMATION
  Report Type: 
  Country: None (occurrence: None)
  Receive Date: 20111016
  Receipt Date: 20110928
  Transmission Date: 20120403
  Serious: Yes (Other)
  Sender: FDA-Public Use
  Company Number: PHHY2011BR86816

PATIENT
  Age: 68 Year
  Sex: Female

DRUGS (9)
  1. ENALAPRIL MALEATE [Suspect]
     Dosage: 20 MG, BID
  2. ATENOLOL [Suspect]
     Dosage: 50 MG, QD
  3. NPH INSULIN [Suspect]
     Dosage: 25 IU AT MORNING AND 8 IU AT NIGHT
  4. EXFORGE [Concomitant]
     Dosage: 350 MG OF VALS AND 5 MG OF AMLO DAILY
  5. LEVOTHYROXINE SODIUM [Suspect]
     Dosage: 75 UG, DAILY
  6. HYDROCHLOROTHIAZIDE [Suspect]
     Dosage: 25 MG, DAILY
  7. ASPIRIN [Concomitant]
     Dosage: 100 MG, DAILY
  8. METFORMIN HYDROCHLORIDE [Suspect]
     Dosage: 500 MG, BID
  9. RASILEZ [Suspect]
     Dosage: 300 MG

REACTIONS (7)
  - BLOOD GLUCOSE INCREASED [None]
  - GLYCOSYLATED HAEMOGLOBIN INCREASED [None]
  - AORTIC DISORDER [None]
  - BLOOD UREA INCREASED [None]
  - AORTIC VALVE STENOSIS [None]
  - MITRAL VALVE INCOMPETENCE [None]
  - LEFT VENTRICULAR HYPERTROPHY [None]
